APPROVED DRUG PRODUCT: BEXAROTENE
Active Ingredient: BEXAROTENE
Strength: 75MG
Dosage Form/Route: CAPSULE;ORAL
Application: A203174 | Product #001 | TE Code: AB
Applicant: BIONPHARMA INC
Approved: Aug 12, 2014 | RLD: No | RS: No | Type: RX